FAERS Safety Report 23727916 (Version 3)
Quarter: 2024Q2

REPORT INFORMATION
  Report Type: Spontaneous
  Country: JP (occurrence: None)
  Receive Date: 20240410
  Receipt Date: 20240527
  Transmission Date: 20240716
  Serious: Yes (Hospitalization, Other)
  Sender: FDA-Public Use
  Company Number: 2024A084276

PATIENT
  Age: 27 Year
  Sex: Male

DRUGS (1)
  1. SEROQUEL [Suspect]
     Active Substance: QUETIAPINE FUMARATE
     Indication: Product used for unknown indication
     Dosage: 150 MG/DAY, UNKNOWN FREQ.
     Route: 048

REACTIONS (4)
  - Hernia [Unknown]
  - Renal disorder [Unknown]
  - Anaemia [Unknown]
  - Haemorrhage subcutaneous [Recovered/Resolved]

NARRATIVE: CASE EVENT DATE: 20240403
